FAERS Safety Report 21060027 (Version 9)
Quarter: 2022Q4

REPORT INFORMATION
  Report Type: Spontaneous
  Country: US (occurrence: US)
  Receive Date: 20220708
  Receipt Date: 20221205
  Transmission Date: 20230113
  Serious: Yes (Other)
  Sender: FDA-Public Use
  Company Number: US-SA-SAC20220704001425

PATIENT
  Age: 62 Year
  Sex: Female

DRUGS (8)
  1. DUPIXENT [Suspect]
     Active Substance: DUPILUMAB
     Indication: Asthma
     Dosage: 300 MG, QOW
     Route: 058
     Dates: start: 20210119
  2. DUPIXENT [Suspect]
     Active Substance: DUPILUMAB
     Dosage: 300 MG, QOW
     Route: 058
     Dates: start: 20220119
  3. SILDENAFIL CITRATE [Suspect]
     Active Substance: SILDENAFIL CITRATE
     Dosage: UNK
  4. TADALAFIL [Suspect]
     Active Substance: TADALAFIL
     Dosage: UNK
  5. TYVASO [Suspect]
     Active Substance: TREPROSTINIL
     Dosage: UNK
  6. PREDNISONE [Concomitant]
     Active Substance: PREDNISONE
     Dosage: UNK
  7. ALBUTEROL [Concomitant]
     Active Substance: ALBUTEROL
     Dosage: UNK
  8. TYVASO [Concomitant]
     Active Substance: TREPROSTINIL

REACTIONS (19)
  - Asphyxia [Unknown]
  - Throat irritation [Recovered/Resolved]
  - Pain in extremity [Unknown]
  - Dyspnoea [Recovering/Resolving]
  - Panic attack [Unknown]
  - Chest pain [Unknown]
  - Headache [Recovering/Resolving]
  - Pollakiuria [Recovering/Resolving]
  - Abdominal distension [Recovering/Resolving]
  - Urine output decreased [Recovering/Resolving]
  - Wheezing [Unknown]
  - Cough [Unknown]
  - Paraesthesia [Unknown]
  - Asthma [Recovering/Resolving]
  - Arthralgia [Unknown]
  - Pain [Unknown]
  - Nasopharyngitis [Unknown]
  - Chest discomfort [Unknown]
  - Dysphonia [Unknown]

NARRATIVE: CASE EVENT DATE: 20220101
